FAERS Safety Report 26130142 (Version 1)
Quarter: 2025Q4

REPORT INFORMATION
  Report Type: Spontaneous
  Country: EU (occurrence: EU)
  Receive Date: 20251208
  Receipt Date: 20251208
  Transmission Date: 20260118
  Serious: Yes (Other)
  Sender: AMGEN
  Company Number: EU-PFIZER INC-PV202500136182

PATIENT
  Age: 69 Year
  Sex: Female

DRUGS (6)
  1. XGEVA [Suspect]
     Active Substance: DENOSUMAB
     Indication: Breast cancer metastatic
     Dosage: 120 MG/1F/4 WEEKS
     Route: 065
     Dates: start: 202305
  2. IBRANCE [Suspect]
     Active Substance: PALBOCICLIB
     Indication: Breast cancer metastatic
     Dosage: 125 MG, 1 TABLET/DAY, 21 DAYS, 7-DAY BREAK
     Route: 065
     Dates: start: 202305, end: 2023
  3. IBRANCE [Suspect]
     Active Substance: PALBOCICLIB
     Dosage: STEP 1 REDUCTION PALBOCICLIB 100 MG (FOR TREATMENT CYCLE 2)
     Route: 065
     Dates: start: 202307, end: 2023
  4. IBRANCE [Suspect]
     Active Substance: PALBOCICLIB
     Dosage: 75 MG (STEP 2 REDUCTION)
     Route: 065
     Dates: start: 202309
  5. FEMARA [Suspect]
     Active Substance: LETROZOLE
     Indication: Breast cancer metastatic
     Dosage: 2.5 MG, 1 TABLET/DAY, DAILY
     Route: 048
     Dates: start: 202305
  6. TRAMADOL [Concomitant]
     Active Substance: TRAMADOL
     Indication: Pelvic pain
     Dosage: 100 MG, 3X/DAY

REACTIONS (3)
  - Metastases to bone [Recovering/Resolving]
  - Malignant neoplasm progression [Recovering/Resolving]
  - Lymphadenopathy mediastinal [Unknown]

NARRATIVE: CASE EVENT DATE: 20231001
